FAERS Safety Report 21334718 (Version 1)
Quarter: 2022Q3

REPORT INFORMATION
  Report Type: Other
  Country: US (occurrence: US)
  Receive Date: 20220914
  Receipt Date: 20220914
  Transmission Date: 20221027
  Serious: No
  Sender: FDA-Public Use
  Company Number: US-LEADIANT BIOSCIENCES INC-2022STPI000106

PATIENT
  Sex: Female

DRUGS (1)
  1. MATULANE [Suspect]
     Active Substance: PROCARBAZINE HYDROCHLORIDE
     Indication: Adrenal gland cancer
     Dosage: 50 MILLIGRAM, TAKE 3 CAPSULES (150 MG TOTAL), DAILY ON DAYS 8-21 OF EACH 28 CYCLE
     Route: 048
     Dates: start: 20211105

REACTIONS (3)
  - Pain [Unknown]
  - Constipation [Unknown]
  - Fatigue [Unknown]
